FAERS Safety Report 10229328 (Version 1)
Quarter: 2014Q2

REPORT INFORMATION
  Report Type: Spontaneous
  Country: US (occurrence: US)
  Receive Date: 20140611
  Receipt Date: 20140611
  Transmission Date: 20141212
  Serious: Yes (Death, Life-Threatening, Hospitalization, Other)
  Sender: FDA-Public Use
  Company Number: US-009507513-1406USA004839

PATIENT
  Sex: Female

DRUGS (1)
  1. NUVARING [Suspect]
     Dosage: 15 MCG ETHINYL ESTRADIOL + 120 MCG ETONOGESTREL
     Route: 067

REACTIONS (1)
  - Intracranial venous sinus thrombosis [Fatal]
